FAERS Safety Report 21135927 (Version 1)
Quarter: 2022Q3

REPORT INFORMATION
  Report Type: Report from Study
  Country: EG (occurrence: EG)
  Receive Date: 20220727
  Receipt Date: 20220727
  Transmission Date: 20221027
  Serious: Yes (Death, Other)
  Sender: FDA-Public Use
  Company Number: EG-NOVARTISPH-NVSC2022EG169438

PATIENT
  Sex: Male

DRUGS (1)
  1. ENTRESTO [Suspect]
     Active Substance: SACUBITRIL\VALSARTAN
     Indication: Cardiac failure
     Dosage: UNK
     Route: 048

REACTIONS (6)
  - Death [Fatal]
  - Syncope [Unknown]
  - Hypotension [Unknown]
  - Ejection fraction decreased [Unknown]
  - Pulmonary oedema [Unknown]
  - Oedema [Unknown]

NARRATIVE: CASE EVENT DATE: 20220701
